FAERS Safety Report 5957428-8 (Version None)
Quarter: 2008Q4

REPORT INFORMATION
  Report Type: 
  Country: None (occurrence: None)
  Receive Date: 20081114
  Receipt Date: 20081106
  Transmission Date: 20090506
  Serious: Yes (Hospitalization)
  Sender: FDA-Public Use
  Company Number: ABX44-08-0398

PATIENT
  Age: 51 Year
  Sex: Female
  Weight: 109.3169 kg

DRUGS (3)
  1. ABRAXANE [Suspect]
     Indication: OVARIAN CANCER
     Dosage: INTRAVENOUS
     Route: 042
     Dates: start: 20080725
  2. AVASTIN [Suspect]
     Indication: OVARIAN CANCER
     Dosage: INTRAVENOUS
     Route: 042
     Dates: start: 20080725
  3. LISINOPRIL [Concomitant]

REACTIONS (10)
  - ADENOCARCINOMA [None]
  - BLOOD PRESSURE DIASTOLIC DECREASED [None]
  - DISEASE PROGRESSION [None]
  - HYDRONEPHROSIS [None]
  - HYDROURETER [None]
  - INTESTINAL PERFORATION [None]
  - LYMPHADENOPATHY [None]
  - METASTATIC NEOPLASM [None]
  - SKIN LESION [None]
  - SMALL INTESTINE CARCINOMA RECURRENT [None]
